FAERS Safety Report 6171815-7 (Version None)
Quarter: 2009Q2

REPORT INFORMATION
  Report Type: 
  Country: None (occurrence: None)
  Receive Date: 20090429
  Receipt Date: 20090423
  Transmission Date: 20091009
  Serious: Yes (Other)
  Sender: FDA-Public Use
  Company Number: FR-ROCHE-629364

PATIENT
  Sex: Female

DRUGS (5)
  1. RIVOTRIL [Suspect]
     Indication: FIBROMYALGIA
     Dosage: FREQUENCY: BEDTIME
     Route: 048
  2. CYMBALTA [Suspect]
     Indication: FIBROMYALGIA
     Route: 048
     Dates: start: 20080812
  3. AZITHROMYCIN [Suspect]
     Dosage: DOSE: I TABLET; FREQUENCY: EVERY DAY
     Route: 048
  4. COLIMYCINE [Suspect]
     Route: 065
     Dates: start: 20070101
  5. SYMBICORT [Suspect]
     Dosage: FREQUENCY: 2 DOSES IN THE MORNING AND 2 DOSES AT BEDTIME
     Route: 065

REACTIONS (3)
  - ANXIETY [None]
  - DYSAESTHESIA [None]
  - SUICIDAL IDEATION [None]
